FAERS Safety Report 16018915 (Version 2)
Quarter: 2019Q1

REPORT INFORMATION
  Report Type: Spontaneous
  Country: US (occurrence: JP)
  Receive Date: 20190228
  Receipt Date: 20190321
  Transmission Date: 20190418
  Serious: Yes (Hospitalization)
  Sender: FDA-Public Use
  Company Number: US-BIOCRYST PHARMACEUTICALS, INC.-2019BCR00087

PATIENT
  Age: 8 Year
  Sex: Male

DRUGS (6)
  1. FAMOTIDINE. [Concomitant]
     Active Substance: FAMOTIDINE
     Indication: GASTROINTESTINAL MUCOSAL DISORDER
     Dosage: 26 MG, 1X/DAY
     Route: 042
     Dates: start: 20190118, end: 20190120
  2. NOBELBAR [Concomitant]
     Active Substance: PHENOBARBITAL SODIUM
     Indication: SEIZURE
     Dosage: 250 MG, 1X/DAY
     Route: 042
     Dates: start: 20190118, end: 20190118
  3. RAPIACTA [Suspect]
     Active Substance: PERAMIVIR
     Indication: INFLUENZA
     Dosage: 260 MG, 1X/DAY
     Route: 042
     Dates: start: 20190118, end: 20190118
  4. CERCINE [Concomitant]
     Active Substance: DIAZEPAM
     Indication: SEIZURE
     Dosage: 5 MG, 1X/DAY
     Route: 042
     Dates: start: 20190118, end: 20190118
  5. PRIDOL [Concomitant]
     Active Substance: METHYLPREDNISOLONE SODIUM SUCCINATE
     Indication: ENCEPHALOPATHY
     Dosage: 625 MG, 1X/DAY
     Route: 042
     Dates: start: 20190118, end: 20190118
  6. XOFLUZA [Suspect]
     Active Substance: BALOXAVIR MARBOXIL
     Indication: INFLUENZA
     Dosage: 20 MG, 1X/DAY
     Route: 048
     Dates: start: 20190118, end: 20190118

REACTIONS (3)
  - Cough [Recovering/Resolving]
  - Seizure [Recovered/Resolved]
  - Urticaria [Recovering/Resolving]

NARRATIVE: CASE EVENT DATE: 20190118
